FAERS Safety Report 6190498-3 (Version None)
Quarter: 2009Q2

REPORT INFORMATION
  Report Type: 
  Country: None (occurrence: None)
  Receive Date: 20090514
  Receipt Date: 20090514
  Transmission Date: 20091009
  Serious: Yes (Life-Threatening, Hospitalization)
  Sender: FDA-Public Use
  Company Number: None

PATIENT
  Age: 14 Year
  Sex: Female
  Weight: 45.3597 kg

DRUGS (4)
  1. MIFEPREX [Suspect]
     Indication: ABORTION SPONTANEOUS
     Dosage: 200 MG 1TIME PO
     Route: 048
     Dates: start: 20070224, end: 20070224
  2. MIFEPREX [Suspect]
     Indication: PREGNANCY
     Dosage: 200 MG 1TIME PO
     Route: 048
     Dates: start: 20070224, end: 20070224
  3. MISOPROSTOL [Suspect]
     Indication: ABORTION SPONTANEOUS
     Dosage: 800MCG 4 TABLETS 1 TIME VAG
     Route: 067
     Dates: start: 20070224, end: 20070424
  4. MISOPROSTOL [Suspect]
     Indication: PREGNANCY
     Dosage: 800MCG 4 TABLETS 1 TIME VAG
     Route: 067
     Dates: start: 20070224, end: 20070424

REACTIONS (3)
  - BRAIN STEM THROMBOSIS [None]
  - CEREBROVASCULAR ACCIDENT [None]
  - DRUG EXPOSURE DURING PREGNANCY [None]
